FAERS Safety Report 5088898-8 (Version None)
Quarter: 2006Q3

REPORT INFORMATION
  Report Type: 
  Country: None (occurrence: None)
  Receive Date: 20060824
  Receipt Date: 20060824
  Transmission Date: 20061208
  Serious: Yes (Hospitalization)
  Sender: FDA-Public Use
  Company Number: None

PATIENT
  Age: 13 Year
  Sex: Male
  Weight: 38.5557 kg

DRUGS (2)
  1. ALLEGRA-D 12 HOUR [Suspect]
     Indication: SEASONAL ALLERGY
     Dosage: ONE TABLET DAILY PO
     Route: 048
     Dates: start: 20060705, end: 20060729
  2. ZYRTEC [Suspect]
     Indication: SEASONAL ALLERGY
     Dosage: ONE TABLET DAILY PO
     Route: 048
     Dates: start: 20060821, end: 20060823

REACTIONS (1)
  - PALPITATIONS [None]
